FAERS Safety Report 5714092-0 (Version None)
Quarter: 2008Q2

REPORT INFORMATION
  Report Type: 
  Country: None (occurrence: None)
  Receive Date: 20080423
  Receipt Date: 20080416
  Transmission Date: 20081010
  Serious: Yes (Death, Hospitalization)
  Sender: FDA-Public Use
  Company Number: BR-BAYER-200813112LA

PATIENT
  Age: 46 Year
  Sex: Male

DRUGS (2)
  1. BETAFERON [Suspect]
     Indication: MULTIPLE SCLEROSIS
     Dosage: UNIT DOSE: 8 MIU
     Route: 058
     Dates: start: 20070326
  2. UNKNOWN DRUG [Concomitant]
     Indication: PAIN

REACTIONS (6)
  - ANOREXIA [None]
  - DEATH [None]
  - DEPRESSION [None]
  - DYSPNOEA [None]
  - INFECTION [None]
  - PULMONARY OEDEMA [None]
